FAERS Safety Report 14474603 (Version 2)
Quarter: 2018Q1

REPORT INFORMATION
  Report Type: Report from Study
  Country: IL (occurrence: IL)
  Receive Date: 20180201
  Receipt Date: 20180205
  Transmission Date: 20180509
  Serious: Yes (Death)
  Sender: FDA-Public Use
  Company Number: IL-PFIZER INC-2018042878

PATIENT
  Age: 62 Year
  Sex: Male

DRUGS (16)
  1. CISPLATIN. [Suspect]
     Active Substance: CISPLATIN
     Indication: LYMPHOMA
     Dosage: UNK (IN 2010, 2 CYCLES OF RITUXIMAB AND ESHAP)
     Dates: start: 2010
  2. ETOPOSIDE. [Suspect]
     Active Substance: ETOPOSIDE
     Indication: LYMPHOMA
     Dosage: UNK (IN 2010, 2 CYCLES OF RITUXIMAB AND ESHAP)
     Dates: start: 2010
  3. FLUDARABINE [Suspect]
     Active Substance: FLUDARABINE PHOSPHATE
     Indication: B-CELL LYMPHOMA
     Dosage: UNK (RITUXIMAB WITH THREE CYCLES OF THE FLUDARABINE, CYCLOPHOSPHAMIDE, AND MITOXANTRONE REGIMEN)
  4. CYTARABINE. [Suspect]
     Active Substance: CYTARABINE
     Indication: LYMPHOMA
     Dosage: UNK (IN 2010, 2 CYCLES OF RITUXIMAB AND ESHAP)
     Dates: start: 2010
  5. PREDNISONE. [Suspect]
     Active Substance: PREDNISONE
     Indication: LYMPHOMA
     Dosage: UNK (IN 2010, 2 CYCLES OF RITUXIMAB AND ESHAP)
     Dates: start: 2010
  6. PREDNISONE. [Suspect]
     Active Substance: PREDNISONE
     Indication: B-CELL LYMPHOMA
     Dosage: UNK (SIX CYCLES OF R-CHOP)
     Dates: start: 2005
  7. CYCLOPHOSPHAMIDE. [Suspect]
     Active Substance: CYCLOPHOSPHAMIDE
     Indication: B-CELL LYMPHOMA
     Dosage: UNK (SIX CYCLES OF R-CHOP)
     Dates: start: 2005
  8. MITOXANTRONE [Suspect]
     Active Substance: MITOXANTRONE HYDROCHLORIDE
     Indication: B-CELL LYMPHOMA
     Dosage: UNK (RITUXIMAB WITH THREE CYCLES OF THE FLUDARABINE, CYCLOPHOSPHAMIDE, AND MITOXANTRONE REGIMEN)
  9. ADRIAMYCIN [Suspect]
     Active Substance: DOXORUBICIN HYDROCHLORIDE
     Indication: B-CELL LYMPHOMA
     Dosage: UNK (SIX CYCLES OF R-CHOP)
     Dates: start: 2005
  10. RITUXIMAB. [Suspect]
     Active Substance: RITUXIMAB
     Dosage: UNK (BENDAMUSTINE AND RITUXIMAB (FIVE CYCLES))
  11. VINCRISTINE [Suspect]
     Active Substance: VINCRISTINE
     Indication: B-CELL LYMPHOMA
     Dosage: UNK (SIX CYCLES OF R-CHOP)
     Dates: start: 2005
  12. RITUXIMAB. [Suspect]
     Active Substance: RITUXIMAB
     Dosage: UNK (RITUXIMAB WITH THREE CYCLES OF THE FLUDARABINE, CYCLOPHOSPHAMIDE, AND MITOXANTRONE REGIMEN)
  13. RITUXIMAB. [Suspect]
     Active Substance: RITUXIMAB
     Dosage: UNK (IN 2010, 2 CYCLES OF RITUXIMAB AND ESHAP)
     Dates: start: 2010
  14. BENDAMUSTINE [Suspect]
     Active Substance: BENDAMUSTINE
     Indication: LYMPHOMA
     Dosage: UNK (BENDAMUSTINE AND RITUXIMAB (FIVE CYCLES))
  15. RITUXIMAB. [Suspect]
     Active Substance: RITUXIMAB
     Indication: B-CELL LYMPHOMA
     Dosage: UNK (SIX CYCLES OF R-CHOP)
     Dates: start: 2005
  16. CYCLOPHOSPHAMIDE. [Suspect]
     Active Substance: CYCLOPHOSPHAMIDE
     Dosage: UNK (RITUXIMAB WITH THREE CYCLES OF THE FLUDARABINE, CYCLOPHOSPHAMIDE, AND MITOXANTRONE REGIMEN)

REACTIONS (1)
  - Central nervous system enteroviral infection [Fatal]
